FAERS Safety Report 9943496 (Version 1)
Quarter: 2014Q1

REPORT INFORMATION
  Report Type: Report from Study
  Country: US (occurrence: US)
  Receive Date: 20140303
  Receipt Date: 20140303
  Transmission Date: 20141002
  Serious: No
  Sender: FDA-Public Use
  Company Number: US-ABBVIE-13P-163-1047180-00

PATIENT
  Age: 57 Year
  Sex: Female
  Weight: 90.8 kg

DRUGS (3)
  1. HUMIRA [Suspect]
     Indication: ARTHRITIS REACTIVE
     Dates: start: 201207
  2. HUMIRA [Suspect]
     Indication: REITER^S SYNDROME
  3. HUMIRA [Suspect]
     Indication: SPONDYLITIS

REACTIONS (2)
  - Off label use [Not Recovered/Not Resolved]
  - Nasopharyngitis [Not Recovered/Not Resolved]
